FAERS Safety Report 4915441-3 (Version None)
Quarter: 2006Q1

REPORT INFORMATION
  Report Type: 
  Country: None (occurrence: None)
  Receive Date: 20060217
  Receipt Date: 20050414
  Transmission Date: 20060701
  Serious: Yes (Hospitalization, Other)
  Sender: FDA-Public Use
  Company Number: US-MERCK-0504USA03134

PATIENT
  Age: 34 Year
  Sex: Female
  Weight: 59 kg

DRUGS (2)
  1. VIOXX [Suspect]
     Indication: ARTHRITIS
     Route: 048
     Dates: start: 19990201, end: 20010101
  2. ALEVE [Concomitant]
     Route: 065

REACTIONS (21)
  - CEREBROVASCULAR ACCIDENT [None]
  - CHOLECYSTITIS [None]
  - CONNECTIVE TISSUE DISORDER [None]
  - CYST [None]
  - DECREASED APPETITE [None]
  - DRUG ABUSER [None]
  - DRUG TOXICITY [None]
  - FACTOR II DEFICIENCY [None]
  - GAIT DISTURBANCE [None]
  - GRAND MAL CONVULSION [None]
  - HEADACHE [None]
  - HELICOBACTER PYLORI IDENTIFICATION TEST POSITIVE [None]
  - IMMUNOSUPPRESSION [None]
  - MULTIPLE MYELOMA [None]
  - OVERDOSE [None]
  - PELVIC INFLAMMATORY DISEASE [None]
  - PEPTIC ULCER [None]
  - SKIN ULCER [None]
  - SOMNOLENCE [None]
  - SYSTEMIC LUPUS ERYTHEMATOSUS [None]
  - WEIGHT LOSS DIET [None]
